FAERS Safety Report 5716534-3 (Version None)
Quarter: 2008Q2

REPORT INFORMATION
  Report Type: 
  Country: None (occurrence: None)
  Receive Date: 20080424
  Receipt Date: 20080415
  Transmission Date: 20081010
  Serious: Yes (Hospitalization)
  Sender: FDA-Public Use
  Company Number: US-ELI_LILLY_AND_COMPANY-US200804003956

PATIENT
  Sex: Female

DRUGS (12)
  1. BYETTA [Suspect]
     Indication: TYPE 2 DIABETES MELLITUS
     Dosage: 5 UG, 2/D
     Route: 058
     Dates: start: 20050101, end: 20080201
  2. BYETTA [Suspect]
     Dosage: 10 UG, 2/D
     Route: 058
     Dates: start: 20080201
  3. METFORMIN HCL [Concomitant]
     Indication: TYPE 2 DIABETES MELLITUS
     Dosage: 1000 MG, 2/D
     Route: 048
  4. FORADIL [Concomitant]
     Indication: ASTHMA
     Dosage: 12 UG, 2/D
     Route: 055
     Dates: start: 20060101
  5. FLOVENT [Concomitant]
     Indication: ASTHMA
     Dosage: 440 UG, 2/D
     Route: 055
  6. SINGULAIR [Concomitant]
     Indication: ASTHMA
     Dosage: 10 MG, DAILY (1/D)
     Route: 048
     Dates: start: 19890101
  7. DIOVAN [Concomitant]
     Indication: HYPERTENSION
     Dosage: UNK, DAILY (1/D)
     Route: 048
     Dates: start: 19890101
  8. SYNTHROID [Concomitant]
     Indication: HYPOTHYROIDISM
     Dosage: 25 UG, DAILY (1/D)
     Route: 048
     Dates: start: 19980101
  9. XALATAN [Concomitant]
     Indication: GLAUCOMA
     Dosage: 1 GTT, EACH EVENING
     Route: 047
  10. EVISTA [Concomitant]
     Indication: BREAST CANCER
     Dosage: 60 MG, DAILY (1/D)
     Route: 048
  11. AVANDIA [Concomitant]
     Indication: TYPE 2 DIABETES MELLITUS
     Dosage: UNK, DAILY (1/D)
     Route: 048
     Dates: start: 20050101, end: 20050101
  12. ACTOS [Concomitant]
     Indication: TYPE 2 DIABETES MELLITUS
     Dosage: UNK, DAILY (1/D)
     Route: 048
     Dates: end: 20050101

REACTIONS (11)
  - BLOOD GLUCOSE INCREASED [None]
  - BUNION [None]
  - CHEST PAIN [None]
  - DRUG INEFFECTIVE [None]
  - FALL [None]
  - FOOT DEFORMITY [None]
  - JOINT DISLOCATION [None]
  - NON-CARDIAC CHEST PAIN [None]
  - PAIN IN EXTREMITY [None]
  - WEIGHT DECREASED [None]
  - WEIGHT INCREASED [None]
